FAERS Safety Report 7386933-5 (Version None)
Quarter: 2011Q1

REPORT INFORMATION
  Report Type: 
  Country: None (occurrence: None)
  Receive Date: 20110331
  Receipt Date: 20110328
  Transmission Date: 20110831
  Serious: No
  Sender: FDA-Public Use
  Company Number: US-PFIZER INC-2011069884

PATIENT
  Sex: Male
  Weight: 91.61 kg

DRUGS (3)
  1. GEODON [Suspect]
     Indication: BIPOLAR I DISORDER
     Dosage: 20 MG, 2X/DAY
     Route: 048
     Dates: start: 20100101
  2. SYNTHROID [Concomitant]
     Indication: HYPOTHYROIDISM
     Dosage: 100 UG, 1X/DAY
     Route: 048
  3. LAMOTRIGINE [Suspect]
     Indication: BIPOLAR I DISORDER
     Dosage: 300 MG, 1X/DAY
     Route: 048

REACTIONS (1)
  - RESTLESSNESS [None]
